FAERS Safety Report 6654074-8 (Version None)
Quarter: 2010Q1

REPORT INFORMATION
  Report Type: 
  Country: None (occurrence: None)
  Receive Date: 20100326
  Receipt Date: 20100317
  Transmission Date: 20100710
  Serious: Yes (Other)
  Sender: FDA-Public Use
  Company Number: PHHY2010DE11777

PATIENT
  Sex: Female
  Weight: 93.5 kg

DRUGS (5)
  1. RASILEZ [Suspect]
     Indication: HYPERTENSION
     Dosage: 150 MG, BID
     Route: 048
     Dates: start: 20090709
  2. RASILEZ [Suspect]
     Dosage: 150 MG, QD
     Route: 048
  3. AMIODARONE HCL [Concomitant]
     Indication: ATRIAL FIBRILLATION
     Dosage: 200 MG, 1-0-0
     Route: 048
     Dates: start: 20071101
  4. BISOPROLOL [Concomitant]
     Indication: ATRIAL FIBRILLATION
     Dosage: 0.5 MG PER DAY
     Route: 048
     Dates: start: 20071101
  5. MICARDIS HCT [Concomitant]
     Dosage: 200 MG
     Route: 048
     Dates: start: 20090601

REACTIONS (1)
  - ELECTROCARDIOGRAM QT PROLONGED [None]
